FAERS Safety Report 16350502 (Version 1)
Quarter: 2019Q2

REPORT INFORMATION
  Report Type: Spontaneous
  Country: None (occurrence: CN)
  Receive Date: 20190524
  Receipt Date: 20190524
  Transmission Date: 20190711
  Serious: No
  Sender: FDA-Public Use
  Company Number: CN-JIANGSU HENGRUI MEDICINE CO., LTD.-2067408

PATIENT
  Age: 48 Year
  Sex: Male

DRUGS (8)
  1. CYCLOPHOSPHAMIDE FOR INJECTION USP, 500 MG, 1 G AND 2 G PER SINGLE-DOS [Suspect]
     Active Substance: CYCLOPHOSPHAMIDE
     Indication: LYMPHOMA
     Dates: start: 20171229
  2. ETOPOSIDE. [Concomitant]
     Active Substance: ETOPOSIDE
  3. VINCRISTINE [Concomitant]
     Active Substance: VINCRISTINE
  4. METHOTREXATE. [Concomitant]
     Active Substance: METHOTREXATE
  5. PREDNISONE. [Concomitant]
     Active Substance: PREDNISONE
  6. CYTARABINE. [Concomitant]
     Active Substance: CYTARABINE
  7. RITUXIMAB. [Concomitant]
     Active Substance: RITUXIMAB
  8. DOXORUBICIN [Concomitant]
     Active Substance: DOXORUBICIN

REACTIONS (4)
  - Vomiting [Unknown]
  - Disease progression [Unknown]
  - Diplopia [Unknown]
  - Nausea [Unknown]
